FAERS Safety Report 13703157 (Version 1)
Quarter: 2017Q2

REPORT INFORMATION
  Report Type: Spontaneous
  Country: US (occurrence: US)
  Receive Date: 20170629
  Receipt Date: 20170629
  Transmission Date: 20170830
  Serious: Yes (Other)
  Sender: FDA-Public Use
  Company Number: US-PFIZER INC-2017275867

PATIENT
  Sex: Male

DRUGS (1)
  1. XELJANZ XR [Suspect]
     Active Substance: TOFACITINIB CITRATE
     Dosage: 11 MG, UNK

REACTIONS (11)
  - Hyperhidrosis [Unknown]
  - Haematochezia [Unknown]
  - Neck pain [Unknown]
  - Fatigue [Unknown]
  - Musculoskeletal stiffness [Unknown]
  - Musculoskeletal pain [Unknown]
  - Joint lock [Unknown]
  - Dyspepsia [Unknown]
  - Joint swelling [Unknown]
  - Malaise [Unknown]
  - Intentional product misuse [Unknown]
